FAERS Safety Report 4537030-5 (Version None)
Quarter: 2004Q4

REPORT INFORMATION
  Report Type: 
  Country: None (occurrence: None)
  Receive Date: 20041221
  Receipt Date: 20041118
  Transmission Date: 20050328
  Serious: Yes (Death)
  Sender: FDA-Public Use
  Company Number: MK200411-0289-1

PATIENT
  Age: 56 Year

DRUGS (3)
  1. HYDROCODONE BITARTRATE + ACETAMINOPHEN [Suspect]
     Dates: end: 20030101
  2. VERAPAMIL [Suspect]
  3. CITALOPRAM [Suspect]

REACTIONS (10)
  - BODY TEMPERATURE DECREASED [None]
  - BRADYCARDIA [None]
  - COMA [None]
  - COMPLETED SUICIDE [None]
  - HYPOTENSION [None]
  - HYPOVENTILATION [None]
  - HYPOXIA [None]
  - MENTAL STATUS CHANGES [None]
  - MULTIPLE DRUG OVERDOSE [None]
  - RESPIRATORY RATE INCREASED [None]
